FAERS Safety Report 24230830 (Version 1)
Quarter: 2024Q3

REPORT INFORMATION
  Report Type: Report from Study
  Country: US (occurrence: US)
  Receive Date: 20240821
  Receipt Date: 20240821
  Transmission Date: 20241017
  Serious: Yes (Other)
  Sender: UCB
  Company Number: US-UCBSA-2024040195

PATIENT
  Age: 5 Year
  Sex: Male
  Weight: 24.943 kg

DRUGS (4)
  1. FINTEPLA [Suspect]
     Active Substance: FENFLURAMINE
     Indication: Severe myoclonic epilepsy of infancy
     Dosage: 12.32 MILLIGRAM/DAY (0.626 MG/KG/DAY)
  2. FINTEPLA [Suspect]
     Active Substance: FENFLURAMINE
     Dosage: 14.08 MILLIGRAM/DAY (0.62 MG/KG/DAY)
  3. FINTEPLA [Suspect]
     Active Substance: FENFLURAMINE
     Dosage: 10.56 MILLIGRAM/DAY (0.46 MG/KG/DAY)
  4. FINTEPLA [Suspect]
     Active Substance: FENFLURAMINE
     Dosage: 3.8 MILLILITER, 2X/DAY (BID)
     Route: 048

REACTIONS (1)
  - Mitral valve incompetence [Not Recovered/Not Resolved]

NARRATIVE: CASE EVENT DATE: 20240718
